FAERS Safety Report 5505553-8 (Version None)
Quarter: 2007Q4

REPORT INFORMATION
  Report Type: 
  Country: None (occurrence: None)
  Receive Date: 20071102
  Receipt Date: 20071025
  Transmission Date: 20080405
  Serious: Yes (Other)
  Sender: FDA-Public Use
  Company Number: JP-ASTRAZENECA-2007AP06737

PATIENT
  Age: 51 Year
  Sex: Female

DRUGS (1)
  1. MARCAINE [Suspect]
     Indication: SEDATION
     Route: 008

REACTIONS (1)
  - EXTRADURAL HAEMATOMA [None]
